FAERS Safety Report 5097680-7 (Version None)
Quarter: 2006Q3

REPORT INFORMATION
  Report Type: 
  Country: None (occurrence: None)
  Receive Date: 20060901
  Receipt Date: 20060824
  Transmission Date: 20061208
  Serious: Yes (Death, Other)
  Sender: FDA-Public Use
  Company Number: FR-2006-008327

PATIENT
  Age: 73 Year
  Sex: Male
  Weight: 86 kg

DRUGS (11)
  1. MAGNEVIST [Suspect]
     Indication: COMPUTERISED TOMOGRAM THORAX
     Dosage: 68.8 ML, 1 DOSE, INTRAVENOUS
     Route: 042
     Dates: start: 20050405
  2. PLAVIX [Concomitant]
  3. IKOREL (NICORANDIL) [Concomitant]
  4. ZOCOR [Concomitant]
  5. FERROUS SULFATE TAB [Concomitant]
  6. OMEPRAZOLE [Concomitant]
  7. CARDENSIEL (BISOPROLOL FUMARATE) [Concomitant]
  8. RAMIPRIL [Concomitant]
  9. BUMETANIDE [Concomitant]
  10. INSULIN [Concomitant]
  11. EPINEPHRINE [Concomitant]

REACTIONS (23)
  - ACUTE PULMONARY OEDEMA [None]
  - ACUTE RESPIRATORY DISTRESS SYNDROME [None]
  - CARDIAC MURMUR [None]
  - CARDIO-RESPIRATORY ARREST [None]
  - CARDIOGENIC SHOCK [None]
  - CEREBRAL ATROPHY [None]
  - CHOLECYSTITIS [None]
  - CHOLESTASIS [None]
  - CONDITION AGGRAVATED [None]
  - CYTOLYTIC HEPATITIS [None]
  - HAEMODIALYSIS [None]
  - HAEMODYNAMIC INSTABILITY [None]
  - HAEMOGLOBIN DECREASED [None]
  - ISCHAEMIC CARDIOMYOPATHY [None]
  - LEFT VENTRICULAR FAILURE [None]
  - MITRAL VALVE INCOMPETENCE [None]
  - PROTHROMBIN TIME PROLONGED [None]
  - PUPILS UNEQUAL [None]
  - RENAL FAILURE CHRONIC [None]
  - TACHYCARDIA [None]
  - VENTRICULAR ARRHYTHMIA [None]
  - VENTRICULAR HYPOKINESIA [None]
  - WHITE BLOOD CELL COUNT INCREASED [None]
